FAERS Safety Report 20280045 (Version 6)
Quarter: 2023Q1

REPORT INFORMATION
  Report Type: Report from Study
  Country: CN (occurrence: None)
  Receive Date: 20220103
  Receipt Date: 20230112
  Transmission Date: 20230417
  Serious: Yes (Hospitalization)
  Sender: FDA-Public Use
  Company Number: CN-ROCHE-2942095

PATIENT
  Age: 39 Year
  Sex: Female
  Weight: 40 kg

DRUGS (49)
  1. GLOFITAMAB [Suspect]
     Active Substance: GLOFITAMAB
     Indication: Diffuse large B-cell lymphoma recurrent
     Dosage: MOST RECENT DOSE OF STUDY DRUG PRIOR TO AE: 19/OCT/2021 AND 20/OCT/2021
     Route: 042
     Dates: start: 20211019
  2. OBINUTUZUMAB [Suspect]
     Active Substance: OBINUTUZUMAB
     Indication: Diffuse large B-cell lymphoma recurrent
     Dosage: START DATE OF MOST RECENT DOSE OF STUDY DRUG PRIOR TO AE 11/OCT/2021
     Route: 042
     Dates: start: 20211011
  3. METHYLPREDNISOLONE [Concomitant]
     Active Substance: METHYLPREDNISOLONE
     Dosage: SAME DOSE TAKEN ON 26/OCT/2021, 19/OCT/2021
     Route: 042
     Dates: start: 20211011, end: 20211011
  4. METHYLPREDNISOLONE [Concomitant]
     Active Substance: METHYLPREDNISOLONE
     Route: 042
     Dates: start: 20211026, end: 20211026
  5. METHYLPREDNISOLONE [Concomitant]
     Active Substance: METHYLPREDNISOLONE
     Route: 042
     Dates: start: 20211019, end: 20211019
  6. DIPHENHYDRAMINE [Concomitant]
     Active Substance: DIPHENHYDRAMINE
     Dosage: SAME DOSE TAKEN ON 26/OCT/2021
     Route: 030
     Dates: start: 20211011, end: 20211011
  7. DIPHENHYDRAMINE [Concomitant]
     Active Substance: DIPHENHYDRAMINE
     Route: 030
     Dates: start: 20211026, end: 20211026
  8. DIPHENHYDRAMINE [Concomitant]
     Active Substance: DIPHENHYDRAMINE
     Route: 030
     Dates: start: 20211019, end: 20211019
  9. DIPHENHYDRAMINE [Concomitant]
     Active Substance: DIPHENHYDRAMINE
     Route: 030
     Dates: start: 20211103, end: 20211103
  10. COMPOUND PARACETAMOL [Concomitant]
     Route: 048
     Dates: start: 20211011, end: 20211011
  11. DEXAMETHASONE [Concomitant]
     Active Substance: DEXAMETHASONE
     Route: 042
     Dates: start: 20211103, end: 20211103
  12. HYDROCHLOROTHIAZIDE [Concomitant]
     Active Substance: HYDROCHLOROTHIAZIDE
     Indication: Face oedema
     Route: 048
     Dates: start: 20211012, end: 20211014
  13. SPIRONOLACTONE [Concomitant]
     Active Substance: SPIRONOLACTONE
     Indication: Face oedema
     Route: 048
     Dates: start: 20211012, end: 20211014
  14. ALBUMIN HUMAN [Concomitant]
     Active Substance: ALBUMIN HUMAN
     Indication: Hypoalbuminaemia
     Route: 042
     Dates: start: 20211021, end: 20211027
  15. IPRATROPIUM BROMIDE [Concomitant]
     Active Substance: IPRATROPIUM BROMIDE
     Indication: Cough
     Route: 055
     Dates: start: 20211021, end: 20211027
  16. BUDESONIDE [Concomitant]
     Active Substance: BUDESONIDE
     Indication: Cough
     Route: 055
     Dates: start: 20211021, end: 20211027
  17. INSULIN HUMAN [Concomitant]
     Active Substance: INSULIN HUMAN
     Route: 042
     Dates: start: 20211021, end: 20211027
  18. INSULIN HUMAN [Concomitant]
     Active Substance: INSULIN HUMAN
     Route: 042
     Dates: start: 20211021, end: 20211027
  19. INSULIN HUMAN [Concomitant]
     Active Substance: INSULIN HUMAN
     Route: 058
     Dates: start: 20211021, end: 20211027
  20. CALCIUM GLUCONATE [Concomitant]
     Active Substance: CALCIUM GLUCONATE
     Route: 042
     Dates: start: 20211021, end: 20211027
  21. MAGNESIUM ASPARTATE\POTASSIUM ASPARTATE [Concomitant]
     Active Substance: MAGNESIUM ASPARTATE\POTASSIUM ASPARTATE
     Route: 042
     Dates: start: 20211021, end: 20211027
  22. POTASSIUM CHLORIDE [Concomitant]
     Active Substance: POTASSIUM CHLORIDE
     Route: 042
     Dates: start: 20211021, end: 20211027
  23. SODIUM CHLORIDE [Concomitant]
     Active Substance: SODIUM CHLORIDE
     Route: 042
     Dates: start: 20211021, end: 20211027
  24. DEXTROSE [Concomitant]
     Active Substance: DEXTROSE
     Route: 042
     Dates: start: 20211021, end: 20211027
  25. DEXTROSE [Concomitant]
     Active Substance: DEXTROSE
     Route: 042
     Dates: start: 20211021, end: 20211027
  26. DEXTROSE [Concomitant]
     Active Substance: DEXTROSE
     Route: 042
     Dates: start: 20211018, end: 20211019
  27. DEXTROSE [Concomitant]
     Active Substance: DEXTROSE
     Route: 042
     Dates: start: 20211010, end: 20211011
  28. FEBUXOSTAT [Concomitant]
     Active Substance: FEBUXOSTAT
     Indication: Hyperuricaemia
     Route: 048
     Dates: start: 20211009, end: 20211011
  29. SODIUM BICARBONATE [Concomitant]
     Active Substance: SODIUM BICARBONATE
     Indication: Hyperuricaemia
     Route: 048
     Dates: start: 20211010, end: 20211011
  30. FUROSEMIDE [Concomitant]
     Active Substance: FUROSEMIDE
     Indication: Polyuria
     Route: 042
     Dates: start: 20211010, end: 20211011
  31. FUROSEMIDE [Concomitant]
     Active Substance: FUROSEMIDE
     Route: 042
     Dates: start: 20211020, end: 20211020
  32. ILAPRAZOLE [Concomitant]
     Active Substance: ILAPRAZOLE
     Route: 042
     Dates: start: 20211011, end: 20211011
  33. ILAPRAZOLE [Concomitant]
     Active Substance: ILAPRAZOLE
     Route: 042
     Dates: start: 20211020, end: 20211020
  34. ILAPRAZOLE [Concomitant]
     Active Substance: ILAPRAZOLE
     Route: 042
     Dates: start: 20211019, end: 20211019
  35. ILAPRAZOLE [Concomitant]
     Active Substance: ILAPRAZOLE
     Route: 042
     Dates: start: 20211026, end: 20211026
  36. LIDOCAINE [Concomitant]
     Active Substance: LIDOCAINE
     Indication: Local anaesthesia
     Route: 058
     Dates: start: 20211020, end: 20211020
  37. HERBALS [Concomitant]
     Active Substance: HERBALS
     Indication: Anaemia
     Route: 048
     Dates: start: 20211025, end: 20211122
  38. HERBALS [Concomitant]
     Active Substance: HERBALS
     Route: 048
     Dates: start: 20211025, end: 20211122
  39. ATRACTYLODES MACROCEPHALA [Concomitant]
     Indication: Anaemia
     Route: 048
     Dates: start: 20211025, end: 20211122
  40. HERBALS\SMILAX CHINA ROOT [Concomitant]
     Active Substance: HERBALS\SMILAX CHINA ROOT
     Indication: Anaemia
     Route: 048
     Dates: start: 20211025, end: 20211122
  41. ASTRAGALUS MONGHOLICUS [Concomitant]
     Indication: Anaemia
     Route: 048
     Dates: start: 20211025, end: 20211122
  42. LICORICE [Concomitant]
     Active Substance: LICORICE
     Indication: Anaemia
     Route: 048
     Dates: start: 20211025, end: 20211122
  43. CAULIS SPATHOLOBI [Concomitant]
     Indication: Anaemia
     Route: 048
     Dates: start: 20211025, end: 20211122
  44. DRYNARIA FORTUNEI [Concomitant]
     Indication: Anaemia
     Route: 048
     Dates: start: 20211025, end: 20211122
  45. MONTMORILLONITE [Concomitant]
     Active Substance: MONTMORILLONITE
     Indication: Diarrhoea
     Route: 048
     Dates: start: 20211027, end: 20211027
  46. BERBERINE [Concomitant]
     Active Substance: BERBERINE
     Route: 048
     Dates: start: 20211027, end: 20211027
  47. IRON [Concomitant]
     Active Substance: IRON
     Indication: Anaemia
     Route: 048
     Dates: start: 20211025, end: 20211027
  48. OMEPRAZOLE [Concomitant]
     Active Substance: OMEPRAZOLE
     Route: 048
     Dates: start: 20210928, end: 20211012
  49. PREDNISONE ACETATE [Concomitant]
     Active Substance: PREDNISONE ACETATE
     Indication: Neoplasm
     Route: 048
     Dates: start: 20210928, end: 20211012

REACTIONS (2)
  - Hypoxia [Recovered/Resolved]
  - Cytokine release syndrome [Recovered/Resolved]

NARRATIVE: CASE EVENT DATE: 20211020
